FAERS Safety Report 12621180 (Version 1)
Quarter: 2016Q3

REPORT INFORMATION
  Report Type: Spontaneous
  Country: US (occurrence: US)
  Receive Date: 20160804
  Receipt Date: 20160804
  Transmission Date: 20161109
  Serious: No
  Sender: FDA-Public Use
  Company Number: US-PFIZER INC-2016354389

PATIENT
  Age: 62 Year
  Sex: Female
  Weight: 64 kg

DRUGS (3)
  1. SUTENT [Suspect]
     Active Substance: SUNITINIB MALATE
     Indication: GASTROINTESTINAL STROMAL TUMOUR
     Dosage: 50 MG, CYCLIC, 50MG CAPSULE DAILY BY MOUTH FOR 4 WEEKS ON THEN 2 WEEKS OFF^
     Route: 048
     Dates: start: 20160501, end: 20160626
  2. CENTRUM SILVER /02363801/ [Concomitant]
     Active Substance: MINERALS\VITAMINS
     Indication: SUPPLEMENTATION THERAPY
     Dosage: 1 DF, 1X/DAY, ^1 TABLET ONCE DAILY^
  3. FISH OIL [Concomitant]
     Active Substance: FISH OIL
     Indication: SUPPLEMENTATION THERAPY
     Dosage: 1 DF, 1X/DAY, ^1 TABLET ONCE DAILY^

REACTIONS (6)
  - Erythema [Recovered/Resolved]
  - Pain in extremity [Recovered/Resolved]
  - White blood cell count decreased [Unknown]
  - Blister [Recovered/Resolved]
  - Noninfective gingivitis [Recovered/Resolved]
  - Skin exfoliation [Recovered/Resolved]

NARRATIVE: CASE EVENT DATE: 20160705
